FAERS Safety Report 6417820-4 (Version None)
Quarter: 2009Q4

REPORT INFORMATION
  Report Type: 
  Country: None (occurrence: None)
  Receive Date: 20091026
  Receipt Date: 20091013
  Transmission Date: 20100525
  Serious: Yes (Disabling)
  Sender: FDA-Public Use
  Company Number: ADR37722009

PATIENT
  Age: 48 Year
  Sex: Female

DRUGS (6)
  1. SIMVASTATIN [Suspect]
     Indication: HYPERCHOLESTEROLAEMIA
     Dosage: 40 MG ORAL
     Route: 048
     Dates: start: 20060709, end: 20070512
  2. ASPIRIN [Concomitant]
  3. FLUOXETINE [Concomitant]
  4. KILOFEM [Concomitant]
  5. METFORMIN HCL [Concomitant]
  6. VENTOLIN [Concomitant]

REACTIONS (6)
  - CONFUSIONAL STATE [None]
  - DEPRESSION [None]
  - DISTURBANCE IN ATTENTION [None]
  - IMPAIRED WORK ABILITY [None]
  - MEMORY IMPAIRMENT [None]
  - POLYURIA [None]
